FAERS Safety Report 17488405 (Version 1)
Quarter: 2020Q1

REPORT INFORMATION
  Report Type: Spontaneous
  Country: AT (occurrence: AT)
  Receive Date: 20200303
  Receipt Date: 20200303
  Transmission Date: 20200409
  Serious: Yes (Other)
  Sender: FDA-Public Use
  Company Number: NVSC2020AT057522

PATIENT
  Age: 78 Year
  Sex: Male
  Weight: 59 kg

DRUGS (6)
  1. BISOPROLOL [Concomitant]
     Active Substance: BISOPROLOL
     Indication: CORONARY ARTERY DISEASE
     Dosage: 2.5 MG
     Route: 048
  2. TECENTRIQ [Suspect]
     Active Substance: ATEZOLIZUMAB
     Indication: SMALL CELL LUNG CANCER
     Dosage: 1200 MG, TIW
     Route: 042
     Dates: start: 20190916, end: 20190916
  3. ETOPOSIDE. [Suspect]
     Active Substance: ETOPOSIDE
     Indication: SMALL CELL LUNG CANCER
     Dosage: 170 MG, TIW
     Route: 042
     Dates: start: 20190916, end: 20190918
  4. ONDANSETRON [Suspect]
     Active Substance: ONDANSETRON
     Indication: SMALL CELL LUNG CANCER
     Dosage: 8 MG, TIW
     Route: 042
     Dates: start: 20190916, end: 20190916
  5. METFORMIN [Concomitant]
     Active Substance: METFORMIN HYDROCHLORIDE
     Indication: DIABETES MELLITUS
     Dosage: 100 MG
     Route: 065
  6. CARBOPLATIN. [Suspect]
     Active Substance: CARBOPLATIN
     Indication: SMALL CELL LUNG CANCER
     Dosage: 371 MG, TIW
     Route: 042
     Dates: start: 20190916, end: 20190916

REACTIONS (1)
  - Immune-mediated hepatitis [Recovered/Resolved]

NARRATIVE: CASE EVENT DATE: 20191007
